FAERS Safety Report 21260901 (Version 1)
Quarter: 2022Q3

REPORT INFORMATION
  Report Type: Spontaneous
  Country: US (occurrence: US)
  Receive Date: 20220826
  Receipt Date: 20220826
  Transmission Date: 20221026
  Serious: No
  Sender: FDA-Public Use
  Company Number: US-Blueprint Medicines Corporation-SP-US-2022-002648

PATIENT
  Age: 68 Year
  Sex: Female

DRUGS (2)
  1. AYVAKIT [Suspect]
     Active Substance: AVAPRITINIB
     Indication: Systemic mastocytosis
     Dosage: TAKE 1 TABLET (100 MG TOTAL) BY MOUTH EVERY OTHER DAY. ALTERNATING WITH 200 MG TAB EVERY OTHER ?DAY
     Route: 048
     Dates: start: 20211001
  2. AYVAKIT [Suspect]
     Active Substance: AVAPRITINIB
     Dosage: TAKE 1 TABLET (100 MG TOTAL) BY MOUTH EVERY OTHER DAY. ALTERNATING WITH 200 MG TAB EVERY OTHER ?DAY
     Route: 048
     Dates: start: 20211001

REACTIONS (2)
  - Muscle spasms [Not Recovered/Not Resolved]
  - Off label use [Unknown]

NARRATIVE: CASE EVENT DATE: 20211001
